FAERS Safety Report 5000521-7 (Version None)
Quarter: 2006Q2

REPORT INFORMATION
  Report Type: 
  Country: None (occurrence: None)
  Receive Date: 20060512
  Receipt Date: 20060501
  Transmission Date: 20061013
  Serious: Yes (Other)
  Sender: FDA-Public Use
  Company Number: PHEH2006US05679

PATIENT
  Sex: Female

DRUGS (1)
  1. ZELNORM [Suspect]
     Dosage: UNK

REACTIONS (2)
  - COLITIS ISCHAEMIC [None]
  - COLONOSCOPY ABNORMAL [None]
